FAERS Safety Report 4629310-X (Version None)
Quarter: 2005Q2

REPORT INFORMATION
  Report Type: 
  Country: None (occurrence: None)
  Receive Date: 20050405
  Receipt Date: 20050405
  Transmission Date: 20051028
  Serious: Yes (Other)
  Sender: FDA-Public Use
  Company Number: None

PATIENT
  Age: 75 Year
  Sex: Female
  Weight: 85.2762 kg

DRUGS (1)
  1. LEVOTHYROXINE 50MGM [Suspect]
     Indication: HYPOTHYROIDISM
     Dosage: 50 MGM PO QD
     Route: 048

REACTIONS (2)
  - HALLUCINATION, AUDITORY [None]
  - PHARMACEUTICAL PRODUCT COMPLAINT [None]
